FAERS Safety Report 10925599 (Version 1)
Quarter: 2015Q1

REPORT INFORMATION
  Report Type: Spontaneous
  Country: BR (occurrence: BR)
  Receive Date: 20150318
  Receipt Date: 20150318
  Transmission Date: 20150721
  Serious: Yes (Death)
  Sender: FDA-Public Use
  Company Number: BR-PFIZER INC-2014335014

PATIENT
  Age: 41 Year
  Sex: Male
  Weight: 60 kg

DRUGS (4)
  1. RANITIDINE [Concomitant]
     Active Substance: RANITIDINE\RANITIDINE HYDROCHLORIDE
     Dosage: UNK
     Dates: start: 201405, end: 201412
  2. MAREVAN [Concomitant]
     Active Substance: WARFARIN SODIUM
     Dosage: UNK
     Dates: start: 201405, end: 201412
  3. METICORTEN [Concomitant]
     Active Substance: PREDNISONE
     Dosage: UNK
     Dates: start: 201405, end: 201412
  4. SUTENT [Suspect]
     Active Substance: SUNITINIB MALATE
     Indication: RENAL CELL CARCINOMA
     Dosage: 50 MG, 1X/DAY CYCLE 4 X 2
     Route: 048
     Dates: start: 201405, end: 201410

REACTIONS (3)
  - Disease progression [Unknown]
  - Renal cell carcinoma [Unknown]
  - Death [Fatal]

NARRATIVE: CASE EVENT DATE: 201405
